FAERS Safety Report 4575528-4 (Version None)
Quarter: 2005Q1

REPORT INFORMATION
  Report Type: 
  Country: None (occurrence: None)
  Receive Date: 20050131
  Receipt Date: 20050131
  Transmission Date: 20050727
  Serious: Yes (Other)
  Sender: FDA-Public Use
  Company Number: None

PATIENT
  Age: 62 Year
  Sex: Female
  Weight: 83.9154 kg

DRUGS (2)
  1. OMEPRAZOLE [Suspect]
     Indication: GASTROOESOPHAGEAL REFLUX DISEASE
     Dosage: TAKE 1 CAPSULE DAILY
     Dates: start: 20041204, end: 20050104
  2. ECOTRIN [Concomitant]

REACTIONS (6)
  - ABDOMINAL PAIN LOWER [None]
  - EYE PRURITUS [None]
  - FAECES DISCOLOURED [None]
  - NAUSEA [None]
  - OCULAR HYPERAEMIA [None]
  - PHARMACEUTICAL PRODUCT COMPLAINT [None]
